FAERS Safety Report 9714741 (Version 1)
Quarter: 2013Q4

REPORT INFORMATION
  Report Type: Spontaneous
  Country: US (occurrence: US)
  Receive Date: 20131126
  Receipt Date: 20131126
  Transmission Date: 20140711
  Serious: Yes (Other)
  Sender: FDA-Public Use
  Company Number: US-B.I. PHARMACEUTICALS,INC./RIDGEFIELD-2013-BI-38564BP

PATIENT
  Sex: Female
  Weight: 59 kg

DRUGS (4)
  1. COMBIVENT [Suspect]
     Indication: ASTHMA
     Dosage: STRENGTH: 18 MCG / 103 MCG
     Route: 055
     Dates: start: 2009, end: 201305
  2. PREDNISONE [Concomitant]
     Dosage: 5 MG
     Route: 048
  3. METOPROLOL [Concomitant]
     Dosage: 12.5 MG
     Route: 048
  4. ASPIRIN [Concomitant]
     Dosage: 325 MG
     Route: 048

REACTIONS (2)
  - Dementia [Not Recovered/Not Resolved]
  - Off label use [Not Recovered/Not Resolved]
